FAERS Safety Report 6006672-2 (Version None)
Quarter: 2008Q4

REPORT INFORMATION
  Report Type: 
  Country: None (occurrence: None)
  Receive Date: 20081217
  Receipt Date: 20081205
  Transmission Date: 20090506
  Serious: Yes (Hospitalization)
  Sender: FDA-Public Use
  Company Number: GB-AMGEN-UK261588

PATIENT
  Sex: Female

DRUGS (4)
  1. PANITUMUMAB [Suspect]
     Indication: COLORECTAL CANCER
     Route: 041
     Dates: start: 20071203, end: 20080121
  2. IRINOTECAN HYDROCHLORIDE [Concomitant]
     Route: 042
     Dates: start: 20071203
  3. LEUCOVORIN CALCIUM [Concomitant]
     Route: 042
     Dates: start: 20071203
  4. FLUOROURACIL [Concomitant]
     Route: 042
     Dates: start: 20071203

REACTIONS (2)
  - ASTHENIA [None]
  - DIARRHOEA [None]
